FAERS Safety Report 22101341 (Version 2)
Quarter: 2023Q2

REPORT INFORMATION
  Report Type: Spontaneous
  Country: CN (occurrence: CN)
  Receive Date: 20230316
  Receipt Date: 20230405
  Transmission Date: 20230722
  Serious: Yes (Other)
  Sender: FDA-Public Use
  Company Number: CN-JNJFOC-20230319301

PATIENT

DRUGS (1)
  1. IBRUTINIB [Suspect]
     Active Substance: IBRUTINIB
     Indication: Waldenstrom^s macroglobulinaemia
     Route: 065

REACTIONS (131)
  - Haemorrhage urinary tract [Unknown]
  - Subdural haemorrhage [Unknown]
  - Systemic infection [Unknown]
  - Cryptococcosis [Unknown]
  - Haematoma [Unknown]
  - Upper respiratory tract infection [Unknown]
  - Haemoglobin decreased [Unknown]
  - Fatigue [Unknown]
  - Anaemia [Unknown]
  - Tumour lysis syndrome [Unknown]
  - Reticulocyte count increased [Unknown]
  - Contusion [Unknown]
  - Hypertension [Unknown]
  - Haematuria [Unknown]
  - Urinary bladder haemorrhage [Unknown]
  - Splenic haemorrhage [Unknown]
  - Sepsis [Unknown]
  - Squamous cell carcinoma [Unknown]
  - Cholecystitis infective [Unknown]
  - Pneumococcal sepsis [Unknown]
  - Diarrhoea [Unknown]
  - Central nervous system haemorrhage [Unknown]
  - Pneumonitis [Unknown]
  - Pericardial haemorrhage [Unknown]
  - White blood cell count decreased [Unknown]
  - Cerebral haemorrhage [Unknown]
  - Red blood cell count decreased [Unknown]
  - Nail bed bleeding [Unknown]
  - Autoimmune neutropenia [Unknown]
  - Hypogammaglobulinaemia [Unknown]
  - Pneumonia cryptococcal [Unknown]
  - Myalgia [Unknown]
  - Hyphaema [Unknown]
  - Vitreous haemorrhage [Unknown]
  - Red blood cell count abnormal [Unknown]
  - Pneumocystis jirovecii infection [Unknown]
  - Blood immunoglobulin M increased [Unknown]
  - Pericardial effusion [Unknown]
  - Neutropenia [Unknown]
  - Epistaxis [Unknown]
  - Aspergillus infection [Unknown]
  - Arrhythmia supraventricular [Unknown]
  - Peptic ulcer haemorrhage [Unknown]
  - Eye haemorrhage [Unknown]
  - Pulmonary mass [Unknown]
  - Blood viscosity decreased [Unknown]
  - Dermatitis exfoliative generalised [Unknown]
  - Traumatic haemorrhage [Unknown]
  - Splenomegaly [Unknown]
  - Peripheral swelling [Unknown]
  - Asthenia [Unknown]
  - Listeria sepsis [Unknown]
  - Microsporidia infection [Unknown]
  - White blood cell count increased [Unknown]
  - Richter^s syndrome [Unknown]
  - Lymphocyte count increased [Unknown]
  - Immunodeficiency [Unknown]
  - Neutrophil count abnormal [Unknown]
  - Bronchopulmonary aspergillosis [Unknown]
  - Haemothorax [Unknown]
  - Ear haemorrhage [Unknown]
  - Basal cell carcinoma [Unknown]
  - Infection [Unknown]
  - Haemorrhagic diathesis [Unknown]
  - Tachyarrhythmia [Unknown]
  - Nail disorder [Unknown]
  - Urinary tract infection [Unknown]
  - Nail growth abnormal [Unknown]
  - Panniculitis [Unknown]
  - Petechiae [Unknown]
  - Immunoglobulins decreased [Unknown]
  - Haemoglobin abnormal [Unknown]
  - Platelet aggregation abnormal [Unknown]
  - Skin cancer [Unknown]
  - Skin haemorrhage [Unknown]
  - Rhinovirus infection [Unknown]
  - Haemorrhage [Unknown]
  - Cerebral aspergillosis [Unknown]
  - Angina bullosa haemorrhagica [Unknown]
  - Pneumonia fungal [Unknown]
  - Bleeding time prolonged [Unknown]
  - Blood blister [Unknown]
  - Cytopenia [Unknown]
  - Atrial flutter [Unknown]
  - Platelet count abnormal [Unknown]
  - Septic shock [Unknown]
  - Differential white blood cell count abnormal [Unknown]
  - Thrombocytopenia [Unknown]
  - Pneumonia herpes viral [Unknown]
  - Off label use [Unknown]
  - Platelet count decreased [Unknown]
  - Arthralgia [Unknown]
  - Vascular rupture [Unknown]
  - Renal mass [Unknown]
  - Precancerous skin lesion [Unknown]
  - Thyroid hormones decreased [Unknown]
  - Pneumonia [Unknown]
  - Pyrexia [Unknown]
  - Autoimmune haemolytic anaemia [Unknown]
  - Subdural haematoma [Unknown]
  - Meningitis cryptococcal [Unknown]
  - Beta 2 microglobulin increased [Unknown]
  - Disease progression [Unknown]
  - Testicular haemorrhage [Unknown]
  - Central nervous system fungal infection [Unknown]
  - Lymphocytosis [Unknown]
  - Pleural effusion [Unknown]
  - Haemorrhage subcutaneous [Unknown]
  - Ureteric compression [Unknown]
  - Dermatitis infected [Unknown]
  - Cardiac disorder [Unknown]
  - Onychoclasis [Unknown]
  - Atrial fibrillation [Unknown]
  - Full blood count abnormal [Unknown]
  - Mucosal haemorrhage [Unknown]
  - Pneumonia pseudomonal [Unknown]
  - Blood immunoglobulin M decreased [Unknown]
  - Skin atrophy [Unknown]
  - Ecchymosis [Unknown]
  - Mouth haemorrhage [Unknown]
  - Muscle spasms [Unknown]
  - Haematotympanum [Unknown]
  - Splenic rupture [Unknown]
  - Increased tendency to bruise [Unknown]
  - West Nile viral infection [Unknown]
  - Lymphadenopathy [Unknown]
  - Blood immunoglobulin G decreased [Unknown]
  - Muscle haemorrhage [Unknown]
  - Brain abscess [Unknown]
  - Rash [Unknown]
  - Skin infection [Unknown]
